FAERS Safety Report 6038771-3 (Version None)
Quarter: 2009Q1

REPORT INFORMATION
  Report Type: 
  Country: None (occurrence: None)
  Receive Date: 20090115
  Receipt Date: 20080307
  Transmission Date: 20090719
  Serious: No
  Sender: FDA-Public Use
  Company Number: US-ABBOTT-08P-163-0441266-00

PATIENT
  Sex: Male
  Weight: 109 kg

DRUGS (2)
  1. ADVICOR [Suspect]
     Indication: HIGH DENSITY LIPOPROTEIN ABNORMAL
     Dosage: YELLOW
     Route: 048
     Dates: start: 20071001, end: 20080306
  2. ADVICOR [Suspect]
     Dosage: (PINK)
     Route: 048
     Dates: start: 20080306

REACTIONS (2)
  - FLUSHING [None]
  - HIGH DENSITY LIPOPROTEIN DECREASED [None]
